FAERS Safety Report 6235894-0 (Version None)
Quarter: 2009Q2

REPORT INFORMATION
  Report Type: 
  Country: None (occurrence: None)
  Receive Date: 20090619
  Receipt Date: 20090612
  Transmission Date: 20091009
  Serious: Yes (Other)
  Sender: FDA-Public Use
  Company Number: US-BAYER-200923556NA

PATIENT
  Sex: Female

DRUGS (1)
  1. MIRENA [Suspect]
     Indication: INFECTION
     Dosage: CONTINUOUS
     Route: 015
     Dates: start: 20090421, end: 20090501

REACTIONS (4)
  - ABDOMINAL PAIN [None]
  - ENDOMETRITIS [None]
  - POST PROCEDURAL INFECTION [None]
  - PYREXIA [None]
